FAERS Safety Report 13745333 (Version 1)
Quarter: 2017Q3

REPORT INFORMATION
  Report Type: Spontaneous
  Country: US (occurrence: US)
  Receive Date: 20170711
  Receipt Date: 20170711
  Transmission Date: 20171127
  Serious: No
  Sender: FDA-Public Use
  Company Number: None

PATIENT
  Age: 34 Year
  Sex: Female

DRUGS (1)
  1. PROGESTERON IN /SESAME OIL 50MG/ML WATSON [Suspect]
     Active Substance: PROGESTERONE
     Indication: LUTEAL PHASE DEFICIENCY
     Route: 030
     Dates: start: 20170625, end: 20170702

REACTIONS (3)
  - Injection site urticaria [None]
  - Injection site swelling [None]
  - Drug hypersensitivity [None]

NARRATIVE: CASE EVENT DATE: 20170625
